FAERS Safety Report 7068168-9 (Version None)
Quarter: 2010Q4

REPORT INFORMATION
  Report Type: 
  Country: None (occurrence: None)
  Receive Date: 20101028
  Receipt Date: 20101025
  Transmission Date: 20110411
  Serious: Yes (Death, Other)
  Sender: FDA-Public Use
  Company Number: PHHO2010DE16199

PATIENT
  Sex: Female
  Weight: 66 kg

DRUGS (3)
  1. AFINITOR [Suspect]
     Indication: NEOPLASM
     Dosage: 10 MG
     Route: 048
     Dates: start: 20100909
  2. SORAFENIB COMP-SORA+ [Suspect]
     Indication: NEOPLASM
     Dosage: 200 MG
     Route: 048
     Dates: start: 20100924
  3. AMLODIPINE [Concomitant]

REACTIONS (4)
  - CHEST PAIN [None]
  - DIARRHOEA [None]
  - LOSS OF CONSCIOUSNESS [None]
  - MYOCARDIAL ISCHAEMIA [None]
